FAERS Safety Report 7269962-1 (Version None)
Quarter: 2011Q1

REPORT INFORMATION
  Report Type: 
  Country: None (occurrence: None)
  Receive Date: 20110202
  Receipt Date: 20110120
  Transmission Date: 20110831
  Serious: Yes (Hospitalization)
  Sender: FDA-Public Use
  Company Number: US-ACTELION-A-US2010-40174

PATIENT

DRUGS (2)
  1. TRACLEER [Suspect]
     Indication: PULMONARY ARTERIAL HYPERTENSION
     Dosage: UNK
     Route: 048
     Dates: start: 20061116
  2. REVATIO [Concomitant]

REACTIONS (8)
  - DIZZINESS [None]
  - SWELLING FACE [None]
  - CARDIAC PACEMAKER INSERTION [None]
  - OEDEMA PERIPHERAL [None]
  - DYSPNOEA [None]
  - UPPER RESPIRATORY TRACT INFECTION [None]
  - SINUSITIS [None]
  - FLUID RETENTION [None]
